FAERS Safety Report 19738506 (Version 2)
Quarter: 2021Q3

REPORT INFORMATION
  Report Type: Report from Study
  Country: US (occurrence: US)
  Receive Date: 20210824
  Receipt Date: 20210930
  Transmission Date: 20211014
  Serious: Yes (Other)
  Sender: FDA-Public Use
  Company Number: US-BEH-2021135186

PATIENT
  Age: 21 Year
  Sex: Female
  Weight: 55.79 kg

DRUGS (3)
  1. HAEGARDA [Suspect]
     Active Substance: HUMAN C1-ESTERASE INHIBITOR
     Indication: HEREDITARY ANGIOEDEMA
     Dosage: 4000 INTERNATIONAL UNIT, BIW
     Route: 058
     Dates: start: 20210209, end: 20210816
  2. HAEGARDA [Suspect]
     Active Substance: HUMAN C1-ESTERASE INHIBITOR
     Indication: PROPHYLAXIS
  3. GAMMAGARD [Concomitant]
     Active Substance: HUMAN IMMUNOGLOBULIN G
     Route: 058

REACTIONS (8)
  - Hypersensitivity [Unknown]
  - Rash [Unknown]
  - Injection site urticaria [Unknown]
  - Anaphylactic reaction [Unknown]
  - Vomiting [Unknown]
  - Throat tightness [Unknown]
  - Acne cystic [Unknown]
  - Pustule [Unknown]

NARRATIVE: CASE EVENT DATE: 2021
